FAERS Safety Report 7445293-1 (Version None)
Quarter: 2011Q2

REPORT INFORMATION
  Report Type: 
  Country: None (occurrence: None)
  Receive Date: 20110429
  Receipt Date: 20110418
  Transmission Date: 20111010
  Serious: Yes (Hospitalization, Other)
  Sender: FDA-Public Use
  Company Number: US-BAYER-2011-014124

PATIENT
  Age: 56 Year
  Sex: Male
  Weight: 78.458 kg

DRUGS (15)
  1. SORAFENIB (RAF KINASE INHIBITOR) [Suspect]
     Dosage: 400 MG, BID
     Route: 048
     Dates: start: 20110124, end: 20110208
  2. METOPROLOL SUCCINATE [Concomitant]
     Dosage: 25 MG, QD
     Route: 048
  3. SORAFENIB (RAF KINASE INHIBITOR) [Suspect]
     Indication: HEPATIC NEOPLASM MALIGNANT
     Dosage: 400 MG, QD
     Route: 048
     Dates: start: 20110112, end: 20110123
  4. NASONEX [Concomitant]
     Dosage: 50 MCG
     Route: 045
  5. NORCO [Concomitant]
     Indication: ABDOMINAL PAIN UPPER
     Dosage: 10 MG/ 325 MG
     Route: 048
  6. CELEXA [Concomitant]
     Dosage: 40 MG, QD
     Route: 048
  7. LOMOTIL [Concomitant]
     Dosage: 2.5 -.025 MG QID PRN
     Route: 048
  8. ALBUTEROL SULFATE [Concomitant]
     Dosage: 90 MCG
     Route: 055
  9. GLIPIZIDE [Concomitant]
     Dosage: 5 MG, QD
     Route: 048
  10. SYNTHROID [Concomitant]
     Dosage: 25 ?G, QD
     Route: 048
  11. SIMVASTATIN [Concomitant]
     Dosage: 20 MG, QD
     Route: 048
  12. PROBIOTICS [Concomitant]
     Indication: PROPHYLAXIS
  13. BENTYL [Concomitant]
     Dosage: 10 MG, QID
     Route: 048
  14. LACTULOSE [Concomitant]
     Dosage: 10G/15ML
     Route: 048
  15. ALDACTONE [Concomitant]
     Dosage: 25 MG, QID
     Route: 048

REACTIONS (5)
  - OESOPHAGEAL VARICES HAEMORRHAGE [None]
  - FAECES DISCOLOURED [None]
  - DEEP VEIN THROMBOSIS [None]
  - DIARRHOEA [None]
  - THROMBOCYTOPENIA [None]
